FAERS Safety Report 15185579 (Version 1)
Quarter: 2018Q3

REPORT INFORMATION
  Report Type: Spontaneous
  Country: PT (occurrence: PT)
  Receive Date: 20180723
  Receipt Date: 20180723
  Transmission Date: 20181010
  Serious: Yes (Hospitalization, Other)
  Sender: FDA-Public Use
  Company Number: PT-SHIRE-PT201825397

PATIENT

DRUGS (4)
  1. 476 (MESALAZINE/MESALAMINE) [Suspect]
     Active Substance: MESALAMINE
     Indication: COLITIS ULCERATIVE
     Dosage: 4 G, QD
     Route: 048
  2. INFLIXIMAB [Concomitant]
     Active Substance: INFLIXIMAB
     Indication: COLITIS ULCERATIVE
     Dosage: UNK
     Route: 065
     Dates: start: 201512, end: 201612
  3. 476 (MESALAZINE/MESALAMINE) [Suspect]
     Active Substance: MESALAMINE
     Dosage: 3 G, QD
     Route: 048
     Dates: start: 201411
  4. ETROLIZUMAB. [Concomitant]
     Active Substance: ETROLIZUMAB
     Indication: COLITIS ULCERATIVE
     Dosage: UNK
     Route: 065
     Dates: start: 201612

REACTIONS (2)
  - Organising pneumonia [Recovered/Resolved]
  - Drug effect decreased [Unknown]

NARRATIVE: CASE EVENT DATE: 201707
